FAERS Safety Report 7068878-3 (Version None)
Quarter: 2010Q4

REPORT INFORMATION
  Report Type: 
  Country: None (occurrence: None)
  Receive Date: 20101028
  Receipt Date: 20101015
  Transmission Date: 20110411
  Serious: Yes (Other)
  Sender: FDA-Public Use
  Company Number: DE-SANOFI-AVENTIS-2010SA062998

PATIENT
  Sex: Female

DRUGS (3)
  1. MULTAQ [Suspect]
     Indication: PRODUCT USED FOR UNKNOWN INDICATION
     Route: 065
  2. BETA BLOCKING AGENTS [Concomitant]
     Indication: PRODUCT USED FOR UNKNOWN INDICATION
     Dosage: DOSAGE: 1/2 TABLET MORNING AND EVENING
     Route: 065
  3. ANTIHYPERTENSIVES [Suspect]
     Route: 065

REACTIONS (1)
  - ATRIAL FIBRILLATION [None]
